FAERS Safety Report 12571233 (Version 1)
Quarter: 2016Q3

REPORT INFORMATION
  Report Type: Spontaneous
  Country: US (occurrence: US)
  Receive Date: 20160719
  Receipt Date: 20160719
  Transmission Date: 20161109
  Serious: No
  Sender: FDA-Public Use
  Company Number: US-BAUSCH-BL-2016-009893

PATIENT

DRUGS (1)
  1. XIFAXAN [Suspect]
     Active Substance: RIFAXIMIN
     Indication: OVERGROWTH BACTERIAL
     Route: 065

REACTIONS (4)
  - Therapeutic response unexpected [Unknown]
  - Overgrowth bacterial [Unknown]
  - Weight decreased [Unknown]
  - Off label use [Unknown]
